FAERS Safety Report 5749793-1 (Version None)
Quarter: 2008Q2

REPORT INFORMATION
  Report Type: 
  Country: None (occurrence: None)
  Receive Date: 20080527
  Receipt Date: 20080515
  Transmission Date: 20081010
  Serious: Yes (Disabling)
  Sender: FDA-Public Use
  Company Number: FR-BAYER-200816743GPV

PATIENT
  Age: 24 Year
  Sex: Female
  Weight: 55 kg

DRUGS (4)
  1. CIPROFLOXACIN HCL [Suspect]
     Indication: LUNG INFECTION
     Route: 048
     Dates: start: 20080319, end: 20080327
  2. DOLIPRANE [Concomitant]
     Indication: DRUG USE FOR UNKNOWN INDICATION
     Route: 048
     Dates: start: 20080319, end: 20080327
  3. PIROXICAM [Concomitant]
     Indication: DRUG USE FOR UNKNOWN INDICATION
     Route: 048
     Dates: start: 20080319, end: 20080323
  4. DAILY [Concomitant]
     Indication: CONTRACEPTION
     Route: 048

REACTIONS (3)
  - ERYTHEMA NODOSUM [None]
  - LOWER EXTREMITY MASS [None]
  - TENDONITIS [None]
